FAERS Safety Report 23989891 (Version 2)
Quarter: 2024Q2

REPORT INFORMATION
  Report Type: Spontaneous
  Country: CN (occurrence: CN)
  Receive Date: 20240619
  Receipt Date: 20240625
  Transmission Date: 20240716
  Serious: Yes (Life-Threatening)
  Sender: FDA-Public Use
  Company Number: CN-PFIZER INC-PV202400078933

PATIENT
  Age: 40 Year
  Sex: Male

DRUGS (6)
  1. CYTARABINE [Suspect]
     Active Substance: CYTARABINE
     Indication: Non-Hodgkin^s lymphoma
     Dosage: 0.05 G, 1X/DAY
     Route: 037
     Dates: start: 20240525, end: 20240525
  2. CYTARABINE [Suspect]
     Active Substance: CYTARABINE
     Indication: Prophylaxis
     Dosage: 0.05 G, 1X/DAY
     Route: 037
     Dates: start: 20240527, end: 20240527
  3. CYTARABINE [Suspect]
     Active Substance: CYTARABINE
     Indication: Lymphoma
     Dosage: 6G Q12H IVGTT
     Route: 042
     Dates: start: 20240601, end: 20240603
  4. METHOTREXATE [Suspect]
     Active Substance: METHOTREXATE
     Indication: Non-Hodgkin^s lymphoma
     Dosage: 10 MG, 1X/DAY
     Route: 037
     Dates: start: 20240525, end: 20240525
  5. METHOTREXATE [Suspect]
     Active Substance: METHOTREXATE
     Indication: Prophylaxis
     Dosage: 10 MG, 1X/DAY
     Route: 037
     Dates: start: 20240527, end: 20240527
  6. METHOTREXATE [Suspect]
     Active Substance: METHOTREXATE
     Indication: Lymphoma
     Dosage: 2 G, 1X/DAY
     Dates: start: 20240601, end: 20240601

REACTIONS (2)
  - Myelosuppression [Not Recovered/Not Resolved]
  - Off label use [Unknown]

NARRATIVE: CASE EVENT DATE: 20240525
